FAERS Safety Report 5651032-7 (Version None)
Quarter: 2008Q1

REPORT INFORMATION
  Report Type: 
  Country: None (occurrence: None)
  Receive Date: 20080305
  Receipt Date: 20080227
  Transmission Date: 20080703
  Serious: Yes (Other)
  Sender: FDA-Public Use
  Company Number: A0712242A

PATIENT
  Age: 56 Year
  Sex: Female

DRUGS (5)
  1. ADVAIR DISKUS 100/50 [Suspect]
     Indication: ASTHMA
     Dosage: 1PUFF VARIABLE DOSE
     Route: 055
  2. TOPROL-XL [Concomitant]
  3. AVAPRO [Concomitant]
  4. HYDROCHLOROTHIAZIDE [Concomitant]
  5. LIPITOR [Concomitant]

REACTIONS (11)
  - ARTHRALGIA [None]
  - DIZZINESS [None]
  - HYPERHIDROSIS [None]
  - HYPERTENSION [None]
  - INSOMNIA [None]
  - MACULOPATHY [None]
  - MUSCLE SPASMS [None]
  - NASAL CONGESTION [None]
  - PALPITATIONS [None]
  - PARAESTHESIA [None]
  - TOOTH FRACTURE [None]
